FAERS Safety Report 5163916-7 (Version None)
Quarter: 2006Q4

REPORT INFORMATION
  Report Type: 
  Country: None (occurrence: None)
  Receive Date: 20061204
  Receipt Date: 20061122
  Transmission Date: 20070319
  Serious: Yes (Hospitalization)
  Sender: FDA-Public Use
  Company Number: 2006AP05567

PATIENT
  Age: 57 Year
  Sex: Male

DRUGS (8)
  1. BUDESONIDE [Suspect]
     Indication: ASTHMA
     Dosage: SUSPENSION CONTAINS 1MG BUDESONIDE
     Route: 055
  2. BUDESONIDE [Suspect]
     Route: 055
  3. AMINOPHYLLINE [Concomitant]
     Indication: ASTHMA
     Route: 041
  4. METHYLPREDNISOLONE [Concomitant]
     Indication: ASTHMA
     Route: 041
  5. AZITHROMYCIN [Concomitant]
     Indication: ASTHMA
     Route: 041
  6. PREDNISONE TAB [Concomitant]
     Dosage: DOSE GRADUALLY DECREASING
     Route: 048
  7. SODIUM CHLORIDE [Concomitant]
     Route: 055
  8. VENTOLIN [Concomitant]
     Route: 055

REACTIONS (4)
  - CHEST DISCOMFORT [None]
  - CONDITION AGGRAVATED [None]
  - DRUG HYPERSENSITIVITY [None]
  - WHEEZING [None]
